FAERS Safety Report 8030564-0 (Version None)
Quarter: 2011Q4

REPORT INFORMATION
  Report Type: 
  Country: None (occurrence: None)
  Receive Date: 20111130
  Receipt Date: 20110606
  Transmission Date: 20120403
  Serious: Yes (Hospitalization, Other)
  Sender: FDA-Public Use
  Company Number: US200910005206

PATIENT
  Age: 47 Year
  Sex: Male

DRUGS (11)
  1. EXENATIDE UNK STRENGTH PEN, DISPOSABLE DEVICE (EXENATIDE PEN (UNKNOWN [Concomitant]
  2. ACCUPRIL [Concomitant]
  3. NOVOLOG MIX 70/30 [Concomitant]
  4. TRICOR [Concomitant]
  5. LYRICA [Concomitant]
  6. BYETTA [Suspect]
     Dosage: 10 UG, BID
     Dates: start: 20061026
  7. BYETTA [Suspect]
     Dosage: 10 UG, BID
     Dates: start: 20070121
  8. BYETTA [Suspect]
     Dosage: 10 UG, BID
     Dates: end: 20070501
  9. PLAVIX [Concomitant]
  10. CARDURA [Concomitant]
  11. METFORMIN HCL [Concomitant]

REACTIONS (2)
  - PANCREATITIS ACUTE [None]
  - OFF LABEL USE [None]
